FAERS Safety Report 14833948 (Version 1)
Quarter: 2018Q2

REPORT INFORMATION
  Report Type: Spontaneous
  Country: US (occurrence: US)
  Receive Date: 20180501
  Receipt Date: 20180501
  Transmission Date: 20180711
  Serious: Yes (Other)
  Sender: FDA-Public Use
  Company Number: US-ROCHE-1956930

PATIENT
  Age: 37 Year
  Sex: Female

DRUGS (12)
  1. BEVACIZUMAB. [Suspect]
     Active Substance: BEVACIZUMAB
     Dosage: 67 CC/H
     Route: 042
  2. CARBOPLATIN. [Concomitant]
     Active Substance: CARBOPLATIN
     Indication: OVARIAN CANCER
  3. BEVACIZUMAB. [Suspect]
     Active Substance: BEVACIZUMAB
     Dosage: 200 CC/H FOR 37 MINUTES
     Route: 042
  4. PACLITAXEL. [Concomitant]
     Active Substance: PACLITAXEL
     Indication: OVARIAN CANCER
  5. CETIRIZINE [Concomitant]
     Active Substance: CETIRIZINE HYDROCHLORIDE
     Dosage: NIGHT BEFORE, AND 1 HOUR BEFORE THE START OF THE PROCEDURE
     Route: 065
  6. MONTELUKAST [Concomitant]
     Active Substance: MONTELUKAST SODIUM
     Dosage: NIGHT BEFORE, AND 1 HOUR BEFORE THE START OF THE PROCEDURE
     Route: 065
  7. BEVACIZUMAB. [Suspect]
     Active Substance: BEVACIZUMAB
     Indication: OVARIAN CANCER
     Route: 042
  8. BEVACIZUMAB. [Suspect]
     Active Substance: BEVACIZUMAB
     Dosage: 14-STEP DESENSITIZATION PROTOCOL: DOSE RANGE FROM 0.055 MG - 638.3575 MG AND CUMULATIVE DOSE: 1100 M
     Route: 042
  9. DOXORUBICIN [Concomitant]
     Active Substance: DOXORUBICIN
     Indication: OVARIAN CANCER
  10. PREDNISONE. [Concomitant]
     Active Substance: PREDNISONE
     Dosage: NIGHT BEFORE, AND 1 HOUR BEFORE THE START OF THE PROCEDURE
     Route: 065
  11. FAMOTIDINE. [Concomitant]
     Active Substance: FAMOTIDINE
     Dosage: NIGHT BEFORE, AND 1 HOUR BEFORE THE START OF THE PROCEDURE
     Route: 065
  12. CISPLATIN. [Concomitant]
     Active Substance: CISPLATIN
     Indication: OVARIAN CANCER

REACTIONS (2)
  - Urticaria [Recovered/Resolved]
  - Dyspnoea [Recovered/Resolved]
